FAERS Safety Report 7349726-0 (Version None)
Quarter: 2011Q1

REPORT INFORMATION
  Report Type: 
  Country: None (occurrence: None)
  Receive Date: 20110314
  Receipt Date: 20100831
  Transmission Date: 20110831
  Serious: Yes (Other)
  Sender: FDA-Public Use
  Company Number: US-BAYER-201021616NA

PATIENT
  Sex: Female
  Weight: 71.202 kg

DRUGS (4)
  1. PAXIL [Concomitant]
     Dosage: UNK
     Dates: start: 20010101, end: 20060101
  2. YAZ [Suspect]
     Dosage: UNK UNK, QD
     Route: 048
     Dates: start: 20060601, end: 20060801
  3. YASMIN [Suspect]
     Dosage: UNK UNK, QD
     Route: 048
     Dates: start: 20060601, end: 20060801
  4. ADVIL [Concomitant]
     Dosage: UNK UNK, PRN

REACTIONS (1)
  - CEREBROVASCULAR ACCIDENT [None]
